FAERS Safety Report 17386444 (Version 2)
Quarter: 2020Q1

REPORT INFORMATION
  Report Type: Spontaneous
  Country: JP (occurrence: JP)
  Receive Date: 20200206
  Receipt Date: 20200316
  Transmission Date: 20200409
  Serious: Yes (Death, Other)
  Sender: FDA-Public Use
  Company Number: JP-PFIZER INC-2020046997

PATIENT
  Age: 70 Year
  Sex: Female
  Weight: 53.9 kg

DRUGS (6)
  1. IDAMYCIN [Suspect]
     Active Substance: IDARUBICIN HYDROCHLORIDE
     Indication: ACUTE MYELOID LEUKAEMIA RECURRENT
     Dosage: 13.5 MG, (9 MG/M2), DAILY
     Route: 042
     Dates: start: 20190903, end: 20190905
  2. TAZOPIPE [Concomitant]
     Active Substance: PIPERACILLIN SODIUM\TAZOBACTAM SODIUM
  3. POLARAMINE [Concomitant]
     Active Substance: DEXCHLORPHENIRAMINE MALEATE
     Dosage: UNK
  4. CYLOCIDE [Suspect]
     Active Substance: CYTARABINE
     Indication: ACUTE MYELOID LEUKAEMIA RECURRENT
     Dosage: 150 MG, (100MG/M2), DAILY
     Route: 042
     Dates: start: 20190903, end: 20190909
  5. MIYA-BM [Concomitant]
     Active Substance: CLOSTRIDIUM BUTYRICUM SPORES STRAIN M-55
     Dosage: UNK
  6. DEXART [Concomitant]
     Active Substance: DEXAMETHASONE SODIUM PHOSPHATE

REACTIONS (5)
  - Hypoxia [Unknown]
  - Cardiac failure [Fatal]
  - Anaemia [Unknown]
  - Cardiac failure congestive [Fatal]
  - Cardiac disorder [Fatal]

NARRATIVE: CASE EVENT DATE: 20190916
